FAERS Safety Report 5123873-6 (Version None)
Quarter: 2006Q4

REPORT INFORMATION
  Report Type: 
  Country: None (occurrence: None)
  Receive Date: 20061010
  Receipt Date: 20061005
  Transmission Date: 20070319
  Serious: Yes (Other)
  Sender: FDA-Public Use
  Company Number: CH-GLAXOSMITHKLINE-B0441323A

PATIENT
  Age: 51 Year
  Sex: Male
  Weight: 74 kg

DRUGS (3)
  1. ZEFFIX [Suspect]
     Dosage: 100MG UNKNOWN
     Route: 048
     Dates: start: 20060407, end: 20060430
  2. ZESTRIL [Suspect]
     Indication: NEPHRITIC SYNDROME
     Dosage: 10MG PER DAY
     Route: 048
  3. INDERAL [Suspect]
     Indication: PORTAL HYPERTENSION
     Dosage: 40MG PER DAY
     Route: 048
     Dates: start: 20060407, end: 20060430

REACTIONS (8)
  - BREATH SOUNDS ABNORMAL [None]
  - BRONCHIAL OBSTRUCTION [None]
  - COUGH [None]
  - DRUG INTERACTION [None]
  - DYSPNOEA [None]
  - OBSTRUCTIVE AIRWAYS DISORDER [None]
  - PROLONGED EXPIRATION [None]
  - RHONCHI [None]
